FAERS Safety Report 8560902 (Version 2)
Quarter: 2013Q1

REPORT INFORMATION
  Report Type: Spontaneous
  Country: JP (occurrence: None)
  Receive Date: 20120508
  Receipt Date: 20121113
  Transmission Date: 20140127
  Serious: Yes (Other)
  Sender: FDA-Public Use
  Company Number: DKLU1079134

PATIENT
  Age: 7 Year
  Sex: Female

DRUGS (20)
  1. ERYTHROCIN W (ERYTHROMYCIN ETHYLSUCCINATE) [Concomitant]
  2. DEPAKENE (VALPROIC ACID) [Concomitant]
  3. PROCATEROL (PROCATEROL) [Concomitant]
  4. THEOPHYLLINE (THEOPHYLLINE) [Concomitant]
  5. LIORESAL (BACLOFEN) [Concomitant]
  6. ETIZOLAM (ETIZOLAM) [Concomitant]
  7. EURODIN (DIHYDROERGOCRISTINE MESILATE) [Concomitant]
  8. PANTETHINE (PANTETHINE) [Concomitant]
  9. QVAR (BECLOMETASONE DIPROPIONATE) [Concomitant]
  10. URSODEOXYCHOLIC ACID (URSODEOXYCHOLIC ACID) [Concomitant]
  11. HERBAL PREPARATION (HERBAL PREPARATION) [Concomitant]
  12. CERCINE (DIAZEPAM) [Concomitant]
  13. CARBOCISTEINE (CARBOCISTEINE) [Concomitant]
  14. ONFI [Suspect]
     Indication: EPILEPSY
     Dosage: 0.3 MG/KG MILLIGRAM(S) / KILOGRAM, 1 IN 1 D, ORAL   0.2 MG/ KG MILLIGRAM (S)/ KILOGRAM, 1 IN 1 D, OR
     Route: 048
     Dates: start: 20120409
  15. AMBROXOL HYDROCHLORIDE (AMBROXOL HYROCHLORIDE) [Concomitant]
  16. LACTOBACILLUS BIFIDUS (LACTOBACILLUS BIFIDUS) [Concomitant]
  17. DAIPHEN (BACTRIM) [Concomitant]
  18. BISOLVON (BROMHEXINE HYDROCHLORIDE) [Concomitant]
  19. LACTULOSE (LACTULOSE) [Concomitant]
  20. DANTRIUM (DANTROLENE SODIUM) [Concomitant]

REACTIONS (3)
  - Bradycardia [None]
  - Blood pressure decreased [None]
  - Epilepsy [None]
